FAERS Safety Report 4729464-0 (Version None)
Quarter: 2005Q3

REPORT INFORMATION
  Report Type: 
  Country: None (occurrence: None)
  Receive Date: 20050728
  Receipt Date: 20050726
  Transmission Date: 20060218
  Serious: Yes (Other)
  Sender: FDA-Public Use
  Company Number: 200511581BCC

PATIENT
  Age: 56 Year
  Sex: Male
  Weight: 93.441 kg

DRUGS (5)
  1. ASPIRIN [Suspect]
     Indication: MYOCARDIAL INFARCTION
     Dosage: 325 MG, QD; ORAL
     Route: 048
  2. PRAVACHOL [Concomitant]
     Indication: PROPHYLAXIS
  3. CLARINEX /USA/ [Concomitant]
  4. BENADRYL [Concomitant]
  5. NEXIUM [Concomitant]

REACTIONS (2)
  - HAIR DISORDER [None]
  - TINNITUS [None]
